FAERS Safety Report 24130816 (Version 1)
Quarter: 2024Q3

REPORT INFORMATION
  Report Type: Spontaneous
  Country: US (occurrence: None)
  Receive Date: 20240724
  Receipt Date: 20240724
  Transmission Date: 20241017
  Serious: No
  Sender: ASTRAZENECA
  Company Number: 2024A146047

PATIENT
  Sex: Male

DRUGS (1)
  1. SYMBICORT [Suspect]
     Active Substance: BUDESONIDE\FORMOTEROL FUMARATE DIHYDRATE
     Dosage: 80/4.5 MCG 2 PUFFS IN THE MORNING AND 2 PUFFS IN THE EVENING
     Route: 055

REACTIONS (11)
  - Nervousness [Unknown]
  - Vision blurred [Unknown]
  - Anxiety [Unknown]
  - Oropharyngeal discomfort [Unknown]
  - Chills [Unknown]
  - Nasal congestion [Unknown]
  - Hypoaesthesia [Unknown]
  - Grip strength decreased [Unknown]
  - Heart rate increased [Unknown]
  - Panic attack [Unknown]
  - Intraocular pressure test abnormal [Unknown]
